FAERS Safety Report 17094115 (Version 1)
Quarter: 2019Q4

REPORT INFORMATION
  Report Type: Report from Study
  Country: US (occurrence: US)
  Receive Date: 20191129
  Receipt Date: 20191129
  Transmission Date: 20200122
  Serious: Yes (Other)
  Sender: FDA-Public Use
  Company Number: US-TEVA-2019-US-1144228

PATIENT
  Sex: Female

DRUGS (5)
  1. CEFDINIR. [Concomitant]
     Active Substance: CEFDINIR
  2. COPAXONE [Suspect]
     Active Substance: GLATIRAMER ACETATE
     Indication: MULTIPLE SCLEROSIS
     Dosage: COPAXONE 40 MG 3 TIME PER WEEK
     Route: 058
     Dates: start: 20180418
  3. AIMOVIG [Concomitant]
     Active Substance: ERENUMAB-AOOE
  4. METHYLPREDNISOLON [Concomitant]
     Active Substance: METHYLPREDNISOLONE
  5. CLARITHROMYCIN. [Concomitant]
     Active Substance: CLARITHROMYCIN

REACTIONS (3)
  - Thrombosis [Not Recovered/Not Resolved]
  - Memory impairment [Unknown]
  - Pulmonary thrombosis [Not Recovered/Not Resolved]
